FAERS Safety Report 18392933 (Version 1)
Quarter: 2020Q4

REPORT INFORMATION
  Report Type: Spontaneous
  Country: US (occurrence: US)
  Receive Date: 20201016
  Receipt Date: 20201016
  Transmission Date: 20210114
  Serious: Yes (Death, Other)
  Sender: FDA-Public Use
  Company Number: US-GILEAD-2020-0499386

PATIENT
  Age: 56 Year
  Sex: Male
  Weight: 113.4 kg

DRUGS (17)
  1. REMDESIVIR. [Suspect]
     Active Substance: REMDESIVIR
     Indication: COVID-19 PNEUMONIA
     Dosage: 200 MG, ONCE
     Route: 042
     Dates: start: 20200823, end: 20200823
  2. MUPIROCIN. [Concomitant]
     Active Substance: MUPIROCIN
     Dosage: UNK, BID
     Route: 045
  3. ACETAMINOPHEN. [Concomitant]
     Active Substance: ACETAMINOPHEN
     Dosage: 650 MG
     Route: 048
     Dates: start: 20200823, end: 20200925
  4. DEXAMETHASONE. [Concomitant]
     Active Substance: DEXAMETHASONE
     Dosage: 6 MG, BID
     Route: 042
     Dates: start: 20200824, end: 20200925
  5. MELATONIN [Concomitant]
     Active Substance: MELATONIN
     Dosage: 6 MG, QD
     Route: 048
     Dates: start: 20200823, end: 20200911
  6. PROPOFOL. [Concomitant]
     Active Substance: PROPOFOL
     Dosage: 5-50 MCG/KG/MIN
     Route: 042
     Dates: start: 20200825, end: 20200918
  7. REMDESIVIR. [Suspect]
     Active Substance: REMDESIVIR
     Dosage: 100 MG, QD
     Route: 042
     Dates: start: 20200824, end: 20200826
  8. ALBUTEROL [SALBUTAMOL] [Concomitant]
     Active Substance: ALBUTEROL
     Dosage: 2 DOSAGE FORM
     Route: 055
     Dates: start: 20200823, end: 20200908
  9. MORPHINE SULFATE. [Concomitant]
     Active Substance: MORPHINE SULFATE
     Dosage: 2 MG, Q4HR
     Route: 042
     Dates: start: 20200825, end: 20200911
  10. WHITE PETROLATUM [Concomitant]
     Active Substance: PETROLATUM
     Dosage: UNK, QD
     Route: 047
     Dates: start: 20200825, end: 20200925
  11. CHLORHEXIDINE [Concomitant]
     Active Substance: CHLORHEXIDINE
     Dosage: 15 ML, BID
     Route: 048
     Dates: start: 20200825, end: 20200925
  12. GUAIFENESIN + CODEINE [Concomitant]
     Dosage: 5 ML
     Route: 048
     Dates: start: 20200824, end: 20200911
  13. INSULIN REGULAR HM [Concomitant]
     Active Substance: INSULIN NOS
     Dosage: UNK
     Route: 058
     Dates: start: 20200826, end: 20200829
  14. BENZONATATE. [Concomitant]
     Active Substance: BENZONATATE
     Dosage: 100 MG, TID
     Route: 048
     Dates: start: 20200823, end: 20200911
  15. ALBUTEROL;IPRATROPIUM [Concomitant]
     Active Substance: ALBUTEROL\IPRATROPIUM
     Dosage: 3 ML
     Route: 055
     Dates: start: 20200824, end: 20200925
  16. DEXMEDETOMIDINE. [Concomitant]
     Active Substance: DEXMEDETOMIDINE
     Route: 042
  17. LIDOCAINE. [Concomitant]
     Active Substance: LIDOCAINE
     Dosage: 2 ML, Q3HR
     Route: 055
     Dates: start: 20200824, end: 20200911

REACTIONS (3)
  - Death [Fatal]
  - Septic shock [Not Recovered/Not Resolved]
  - Respiratory failure [Not Recovered/Not Resolved]

NARRATIVE: CASE EVENT DATE: 2020
